FAERS Safety Report 8188527-0 (Version None)
Quarter: 2012Q1

REPORT INFORMATION
  Report Type: 
  Country: None (occurrence: None)
  Receive Date: 20120306
  Receipt Date: 20120229
  Transmission Date: 20120608
  Serious: Yes (Death, Other)
  Sender: FDA-Public Use
  Company Number: PHHY2012CN017897

PATIENT

DRUGS (8)
  1. CYCLOPHOSPHAMIDE [Concomitant]
     Dosage: 300 MG/M2 OF CYCLOPHOSPHAMIDE FOR 12 HS FOR 1-*3 DAYS
     Route: 042
  2. CYCLOPHOSPHAMIDE [Concomitant]
     Dosage: 4-5 MG OF VINDESINE WAS ADMINISTERED BY INTRAVENOUS INFUSION ON DAYS 4 AND 11;
     Route: 042
  3. PIRARUBICIN [Concomitant]
     Route: 042
  4. CYCLOPHOSPHAMIDE [Concomitant]
     Dosage: 40 MG OF DEXAMETHASONE WAS ADMINISTERED BY INTRAVENOUS INFUSION ON DAYS 1-4 AND 11-14
     Route: 042
  5. IMATINIB MESYLATE [Suspect]
     Indication: ACUTE LYMPHOCYTIC LEUKAEMIA
     Dosage: 400 TO 600 MG, DAILY
     Route: 048
  6. VINDESINE [Concomitant]
     Route: 042
  7. DEXAMETHASONE [Concomitant]
     Route: 042
  8. CYCLOPHOSPHAMIDE [Concomitant]
     Dosage: 50 MG/M2 OF PIRARUBICIN WAS ADMINISTERED BY INTRAVENOUS INFUSION ON DAY 4;
     Route: 042

REACTIONS (2)
  - BONE MARROW FAILURE [None]
  - LUNG INFECTION [None]
